FAERS Safety Report 6270039-2 (Version None)
Quarter: 2009Q3

REPORT INFORMATION
  Report Type: 
  Country: None (occurrence: None)
  Receive Date: 20090716
  Receipt Date: 20090707
  Transmission Date: 20100115
  Serious: Yes (Hospitalization)
  Sender: FDA-Public Use
  Company Number: US-BAYER-200922657NA

PATIENT
  Age: 29 Year
  Sex: Female

DRUGS (5)
  1. YAZ [Suspect]
     Indication: CONTRACEPTION
     Dosage: 1 TAB/DAY
     Dates: start: 20081101, end: 20090530
  2. PREDNISONE TAB [Suspect]
     Indication: SCLERODERMA
     Dosage: UNKNOWN
     Route: 065
  3. PREDNISONE TAB [Concomitant]
     Dosage: 20 MG ^TWICE A WEEK^
     Route: 065
  4. ANALGESICS [Concomitant]
  5. PERCOCET [Concomitant]

REACTIONS (4)
  - BLOOD COUNT ABNORMAL [None]
  - FUNGAL OESOPHAGITIS [None]
  - GASTRITIS FUNGAL [None]
  - PREGNANCY ON ORAL CONTRACEPTIVE [None]
